FAERS Safety Report 21527507 (Version 1)
Quarter: 2022Q4

REPORT INFORMATION
  Report Type: Report from Study
  Country: CA (occurrence: CA)
  Receive Date: 20221031
  Receipt Date: 20221031
  Transmission Date: 20230113
  Serious: Yes (Hospitalization, Other)
  Sender: FDA-Public Use
  Company Number: None

PATIENT
  Age: 57 Year
  Sex: Male

DRUGS (5)
  1. METHOTREXATE [Suspect]
     Active Substance: METHOTREXATE
     Indication: Product used for unknown indication
     Route: 058
  2. RITUXIMAB [Suspect]
     Active Substance: RITUXIMAB
     Indication: Rheumatoid arthritis
     Route: 065
  3. ENBRE [Concomitant]
     Indication: Product used for unknown indication
     Route: 058
  4. RITUXIMAB [Suspect]
     Active Substance: RITUXIMAB
     Indication: Rheumatoid arthritis
     Route: 065
  5. RITUXIMAB [Suspect]
     Active Substance: RITUXIMAB
     Indication: Rheumatoid arthritis
     Route: 058

REACTIONS (12)
  - Arthralgia [Recovered/Resolved]
  - Asthenia [Recovered/Resolved]
  - Cardiac dysfunction [Recovered/Resolved]
  - Cough [Recovered/Resolved]
  - COVID-19 [Recovered/Resolved]
  - Diarrhoea [Recovered/Resolved]
  - Feeling of body temperature change [Recovered/Resolved]
  - Injection site pain [Recovered/Resolved]
  - Joint swelling [Recovered/Resolved]
  - Lymphadenopathy [Recovered/Resolved]
  - Lymphoma [Recovered/Resolved]
  - Rheumatoid arthritis [Recovered/Resolved]
